FAERS Safety Report 5157967-6 (Version None)
Quarter: 2006Q4

REPORT INFORMATION
  Report Type: 
  Country: None (occurrence: None)
  Receive Date: 20061116
  Receipt Date: 20061103
  Transmission Date: 20070319
  Serious: Yes (Other)
  Sender: FDA-Public Use
  Company Number: 2006109126

PATIENT
  Age: 64 Year
  Sex: Female
  Weight: 55.3388 kg

DRUGS (6)
  1. LYRICA [Suspect]
     Indication: POLYNEUROPATHY
     Dosage: 100 MG (50 MG, 2 IN 1 D), ORAL
     Route: 048
     Dates: start: 20060828
  2. CORGARD [Concomitant]
  3. BENICAR [Concomitant]
  4. ESTRADIOL [Concomitant]
  5. CELEBREX [Concomitant]
  6. ALEVE [Concomitant]

REACTIONS (14)
  - COGNITIVE DISORDER [None]
  - DRUG DOSE OMISSION [None]
  - FATIGUE [None]
  - FEELING COLD [None]
  - GAIT DISTURBANCE [None]
  - INFLAMMATION [None]
  - INTERVERTEBRAL DISC DISORDER [None]
  - JOINT STIFFNESS [None]
  - MALAISE [None]
  - MOVEMENT DISORDER [None]
  - MUSCULOSKELETAL DISCOMFORT [None]
  - PAIN [None]
  - PARAESTHESIA [None]
  - SPINAL COLUMN STENOSIS [None]
